FAERS Safety Report 25808766 (Version 1)
Quarter: 2025Q3

REPORT INFORMATION
  Report Type: Spontaneous
  Country: US (occurrence: None)
  Receive Date: 20250916
  Receipt Date: 20250916
  Transmission Date: 20251021
  Serious: Yes (Death)
  Sender: FDA-CTU
  Company Number: None

PATIENT
  Age: 28 Year
  Sex: Male
  Weight: 74.25 kg

DRUGS (7)
  1. SUMATRIPTAN [Suspect]
     Active Substance: SUMATRIPTAN
     Indication: Drug therapy
     Dosage: FREQUENCY : AT BEDTIME;?
     Dates: start: 20240108, end: 20241224
  2. GABAPENTIN [Suspect]
     Active Substance: GABAPENTIN
  3. PREDNISONE [Suspect]
     Active Substance: PREDNISONE
  4. AMITRIPTYLINE [Suspect]
     Active Substance: AMITRIPTYLINE
  5. TYLENOL EXTRA STRENGTH [Suspect]
     Active Substance: ACETAMINOPHEN
  6. NAPROXEN SODIUM [Suspect]
     Active Substance: NAPROXEN SODIUM
  7. MEDROL [Suspect]
     Active Substance: METHYLPREDNISOLONE

REACTIONS (7)
  - Thrombosis [None]
  - Hypertension [None]
  - Neck pain [None]
  - Back pain [None]
  - Nerve compression [None]
  - Product prescribing error [None]
  - Legal problem [None]

NARRATIVE: CASE EVENT DATE: 20240108
